FAERS Safety Report 8289990-7 (Version None)
Quarter: 2012Q2

REPORT INFORMATION
  Report Type: 
  Country: None (occurrence: None)
  Receive Date: 20120417
  Receipt Date: 20120403
  Transmission Date: 20120825
  Serious: Yes (Death)
  Sender: FDA-Public Use
  Company Number: GR-MYLANLABS-2012S1007312

PATIENT
  Age: 55 Year
  Sex: Female

DRUGS (3)
  1. VENLAFAXINE [Suspect]
     Indication: OVERDOSE
     Route: 048
  2. MIRTAZAPINE [Concomitant]
     Indication: MENTAL DISORDER
     Route: 065
  3. VENLAFAXINE [Concomitant]
     Indication: MENTAL DISORDER
     Route: 065

REACTIONS (4)
  - BRAIN OEDEMA [None]
  - CEREBRAL HAEMORRHAGE [None]
  - TOXICITY TO VARIOUS AGENTS [None]
  - OVERDOSE [None]
